FAERS Safety Report 23731816 (Version 1)
Quarter: 2024Q2

REPORT INFORMATION
  Report Type: Spontaneous
  Country: US (occurrence: None)
  Receive Date: 20240410
  Receipt Date: 20240410
  Transmission Date: 20240716
  Serious: Yes (Disabling)
  Sender: FDA-Public Use
  Company Number: None

PATIENT
  Age: 64 Year
  Sex: Female
  Weight: 51.75 kg

DRUGS (1)
  1. .DELTA.9-TETRAHYDROCANNABINOL\CANNABIDIOL\HERBALS [Suspect]
     Active Substance: .DELTA.9-TETRAHYDROCANNABINOL\CANNABIDIOL\HERBALS
     Dates: start: 20220226, end: 20240212

REACTIONS (6)
  - Nausea [None]
  - Abdominal pain upper [None]
  - Weight decreased [None]
  - Cannabinoid hyperemesis syndrome [None]
  - Withdrawal syndrome [None]
  - Hepatic enzyme increased [None]
